FAERS Safety Report 8818174 (Version 1)
Quarter: 2012Q4

REPORT INFORMATION
  Report Type: 
  Country: CN (occurrence: CN)
  Receive Date: 20121001
  Receipt Date: 20121001
  Transmission Date: 20130627
  Serious: Yes (Life-Threatening)
  Sender: FDA-Public Use
  Company Number: CN-ASTRAZENECA-2012SE74924

PATIENT
  Age: 78 Year
  Sex: Female
  Weight: 60 kg

DRUGS (3)
  1. ROPIVACAINE [Suspect]
     Indication: NERVE BLOCK
     Route: 053
  2. OXYGEN [Concomitant]
     Dosage: 3 L/min
     Route: 055
  3. LOW MOLECULAR HEPARIN [Concomitant]

REACTIONS (1)
  - Cardiac arrest [Recovered/Resolved]
